FAERS Safety Report 4529138-5 (Version None)
Quarter: 2004Q4

REPORT INFORMATION
  Report Type: 
  Country: None (occurrence: None)
  Receive Date: 20041214
  Receipt Date: 20041201
  Transmission Date: 20050328
  Serious: Yes (Death, Life-Threatening, Hospitalization, Disabling, Other)
  Sender: FDA-Public Use
  Company Number: 2004104367

PATIENT
  Age: 58 Year
  Sex: Male

DRUGS (1)
  1. PHENYTOIN [Suspect]
     Indication: CONVULSION
     Dosage: ORAL
     Route: 048
     Dates: start: 20040101, end: 20040201

REACTIONS (3)
  - BIOPSY BONE MARROW ABNORMAL [None]
  - RASH GENERALISED [None]
  - SKIN DESQUAMATION [None]
